FAERS Safety Report 25161060 (Version 3)
Quarter: 2025Q3

REPORT INFORMATION
  Report Type: Report from Study
  Country: EU (occurrence: EU)
  Receive Date: 20250404
  Receipt Date: 20250819
  Transmission Date: 20251020
  Serious: Yes (Death, Hospitalization)
  Sender: NOVARTIS
  Company Number: EU-002147023-NVSC2025IT055780

PATIENT
  Age: 88 Year
  Sex: Male

DRUGS (5)
  1. ELTROMBOPAG [Suspect]
     Active Substance: ELTROMBOPAG
     Indication: Immune thrombocytopenia
     Route: 048
     Dates: start: 2019
  2. ELTROMBOPAG [Suspect]
     Active Substance: ELTROMBOPAG
  3. LANTUS [Concomitant]
     Active Substance: INSULIN GLARGINE
     Indication: Product used for unknown indication
     Route: 065
     Dates: start: 20180705
  4. LINAGLIPTIN [Concomitant]
     Active Substance: LINAGLIPTIN
     Indication: Product used for unknown indication
     Dosage: 5 MG, QD
     Route: 065
     Dates: start: 20180705
  5. ATORVASTATIN [Concomitant]
     Active Substance: ATORVASTATIN
     Indication: Product used for unknown indication
     Dosage: 20 MG, QD
     Route: 065
     Dates: start: 20130128

REACTIONS (7)
  - Duodenal ulcer [Fatal]
  - Haemorrhage [Fatal]
  - Anaemia [Fatal]
  - Disease progression [Fatal]
  - Cognitive disorder [Fatal]
  - Balance disorder [Fatal]
  - Confusional state [Fatal]

NARRATIVE: CASE EVENT DATE: 20240911
